FAERS Safety Report 9826595 (Version 1)
Quarter: 2014Q1

REPORT INFORMATION
  Report Type: Spontaneous
  Country: DE (occurrence: DE)
  Receive Date: 20140117
  Receipt Date: 20140117
  Transmission Date: 20141002
  Serious: Yes (Other)
  Sender: FDA-Public Use
  Company Number: DE-UCBSA-108722

PATIENT
  Age: 23 Year
  Sex: Male
  Weight: 65 kg

DRUGS (4)
  1. KEPPRA [Suspect]
     Dosage: STRENGTH :1000 MG DOSE TAKEN :1 TABLET
     Dates: start: 20140105
  2. LAMOTRIGIN [Suspect]
     Dosage: STRENGTH : 200 MG, 20 TABLETS,TOTAL AMOUNT: 4000MG
     Dates: start: 20140105
  3. VALPROAT [Suspect]
     Dosage: DOSE TAKEN: 1 TABLET/ THERAPY DOSAGE
     Dates: start: 20140105
  4. PARACETAMOL [Suspect]
     Dosage: STRENGTH : 500, DOSE TAKEN :  BETWEEN 18-34 TABLETS TAKEN EVERY DAY LAST WEEK

REACTIONS (4)
  - Toxicity to various agents [Unknown]
  - Vomiting [Unknown]
  - Dizziness [Unknown]
  - Sluggishness [Unknown]
